FAERS Safety Report 14275951 (Version 1)
Quarter: 2017Q4

REPORT INFORMATION
  Report Type: Spontaneous
  Country: US (occurrence: US)
  Receive Date: 20171212
  Receipt Date: 20171212
  Transmission Date: 20180321
  Serious: Yes (Other)
  Sender: FDA-Public Use
  Company Number: US-GLAXOSMITHKLINE-US2017GSK179044

PATIENT
  Age: 54 Year
  Sex: Female

DRUGS (7)
  1. ETRAVIRINE [Concomitant]
     Active Substance: ETRAVIRINE
  2. RITONAVIR. [Interacting]
     Active Substance: RITONAVIR
     Indication: HIV INFECTION
  3. FLUTICASONE. [Suspect]
     Active Substance: FLUTICASONE
  4. SOLU-MEDROL [Concomitant]
     Active Substance: METHYLPREDNISOLONE SODIUM SUCCINATE
  5. ATAZANAVIR. [Concomitant]
     Active Substance: ATAZANAVIR SULFATE
  6. TRIAMCINOLONE [Interacting]
     Active Substance: TRIAMCINOLONE
     Dosage: UNK
     Route: 030
  7. RALTEGRAVIR. [Concomitant]
     Active Substance: RALTEGRAVIR

REACTIONS (3)
  - Pituitary-dependent Cushing^s syndrome [Unknown]
  - Drug interaction [Unknown]
  - Adrenal suppression [Unknown]
